FAERS Safety Report 8298886-6 (Version None)
Quarter: 2012Q2

REPORT INFORMATION
  Report Type: 
  Country: None (occurrence: None)
  Receive Date: 20120419
  Receipt Date: 20120417
  Transmission Date: 20120825
  Serious: No
  Sender: FDA-Public Use
  Company Number: US-PFIZER INC-2012095515

PATIENT
  Sex: Female
  Weight: 71.655 kg

DRUGS (7)
  1. ZYRTEC [Concomitant]
     Indication: SINUS DISORDER
     Dosage: 10 MG, UNK
  2. CHANTIX [Suspect]
     Indication: SMOKING CESSATION THERAPY
     Dosage: 0.5 MG, 1X/DAY
     Route: 048
  3. ALLOPURINOL [Concomitant]
     Indication: GOUT
     Dosage: 100 MG, UNK
  4. LOSARTAN POTASSIUM AND HYDROCHLOROTHIAZIDE [Concomitant]
     Indication: HYPERTENSION
     Dosage: 100/25 MG, UNK
  5. MIRAPEX [Concomitant]
     Indication: RESTLESS LEGS SYNDROME
     Dosage: 1 MG, UNK
  6. LOPRESSOR [Concomitant]
     Indication: HYPERTENSION
     Dosage: 100 MG, UNK
  7. CHANTIX [Suspect]
     Dosage: UNK
     Route: 048

REACTIONS (1)
  - CONSTIPATION [None]
